FAERS Safety Report 9473707 (Version 1)
Quarter: 2013Q3

REPORT INFORMATION
  Report Type: Spontaneous
  Country: US (occurrence: US)
  Receive Date: 20130823
  Receipt Date: 20130823
  Transmission Date: 20140515
  Serious: Yes (Other)
  Sender: FDA-Public Use
  Company Number: US-BRISTOL-MYERS SQUIBB COMPANY-16915019

PATIENT
  Age: 68 Year
  Sex: Male
  Weight: 82.08 kg

DRUGS (5)
  1. SPRYCEL [Suspect]
     Indication: CHRONIC MYELOID LEUKAEMIA
  2. CYCLOPHOSPHAMIDE [Suspect]
     Indication: CHRONIC MYELOID LEUKAEMIA
  3. VINCRISTINE [Suspect]
     Indication: CHRONIC MYELOID LEUKAEMIA
  4. DOXORUBICIN [Suspect]
     Indication: CHRONIC MYELOID LEUKAEMIA
  5. DEXAMETHASONE [Suspect]
     Indication: CHRONIC MYELOID LEUKAEMIA

REACTIONS (3)
  - Weight decreased [Unknown]
  - Pyrexia [Unknown]
  - Diarrhoea [Unknown]
